FAERS Safety Report 9670359 (Version 2)
Quarter: 2013Q4

REPORT INFORMATION
  Report Type: Spontaneous
  Country: SG (occurrence: None)
  Receive Date: 20131104
  Receipt Date: 20131121
  Transmission Date: 20140711
  Serious: Yes (Death)
  Sender: FDA-Public Use
  Company Number: SG-JNJFOC-20131017256

PATIENT
  Age: 75 Year
  Sex: Male

DRUGS (1)
  1. DACOGEN (DECITABINE) LYOPHILIZED POWDER [Suspect]
     Indication: MYELODYSPLASTIC SYNDROME
     Dosage: ALMOST 2 YEARS
     Route: 042

REACTIONS (4)
  - Infection [None]
  - Disease complication [None]
  - Pneumonia [None]
  - No therapeutic response [None]
